FAERS Safety Report 20086832 (Version 1)
Quarter: 2021Q4

REPORT INFORMATION
  Report Type: Spontaneous
  Country: GB (occurrence: GB)
  Receive Date: 20211118
  Receipt Date: 20211118
  Transmission Date: 20220303
  Serious: Yes (Other)
  Sender: FDA-Public Use
  Company Number: GB-NOVARTISPH-NVSC2021GB204891

PATIENT
  Age: 60 Year
  Sex: Male

DRUGS (1)
  1. TISAGENLECLEUCEL [Suspect]
     Active Substance: TISAGENLECLEUCEL
     Indication: Diffuse large B-cell lymphoma stage IV
     Dosage: UNK, ONCE/SINGLE
     Route: 041

REACTIONS (7)
  - Cytokine release syndrome [Unknown]
  - Pyrexia [Unknown]
  - Immune effector cell-associated neurotoxicity syndrome [Unknown]
  - Influenza [Unknown]
  - Feeling hot [Unknown]
  - Neutrophil count abnormal [Recovered/Resolved]
  - Sleep disorder [Unknown]
